FAERS Safety Report 6427711-0 (Version None)
Quarter: 2009Q4

REPORT INFORMATION
  Report Type: 
  Country: None (occurrence: None)
  Receive Date: 20091105
  Receipt Date: 20091027
  Transmission Date: 20100525
  Serious: Yes (Hospitalization)
  Sender: FDA-Public Use
  Company Number: US-BIOGENIDEC-2008BI020719

PATIENT
  Age: 53 Year
  Sex: Female

DRUGS (2)
  1. AVONEX [Suspect]
     Indication: MULTIPLE SCLEROSIS
     Route: 030
     Dates: start: 20061224, end: 20080525
  2. AVONEX [Suspect]
     Route: 030
     Dates: start: 20080904

REACTIONS (10)
  - CYSTITIS [None]
  - DRUG INEFFECTIVE [None]
  - HERPES ZOSTER OPHTHALMIC [None]
  - INFLUENZA LIKE ILLNESS [None]
  - INJECTION SITE HAEMORRHAGE [None]
  - KIDNEY INFECTION [None]
  - MULTIPLE SCLEROSIS RELAPSE [None]
  - OPTIC NEURITIS [None]
  - SPEECH DISORDER [None]
  - URINARY TRACT INFECTION [None]
